FAERS Safety Report 4782186-2 (Version None)
Quarter: 2005Q3

REPORT INFORMATION
  Report Type: 
  Country: None (occurrence: None)
  Receive Date: 20050927
  Receipt Date: 20050819
  Transmission Date: 20060218
  Serious: No
  Sender: FDA-Public Use
  Company Number: USA0508106261

PATIENT
  Age: 35 Year
  Sex: Male

DRUGS (1)
  1. STRATTERA [Suspect]
     Dosage: 80 MG ONCE PER WEEK FOR THREE WEEKS

REACTIONS (2)
  - BENIGN PROSTATIC HYPERPLASIA [None]
  - EJACULATION DISORDER [None]
